FAERS Safety Report 4569368-X (Version None)
Quarter: 2005Q1

REPORT INFORMATION
  Report Type: 
  Country: None (occurrence: None)
  Receive Date: 20050201
  Receipt Date: 20050120
  Transmission Date: 20050727
  Serious: Yes (Hospitalization)
  Sender: FDA-Public Use
  Company Number: 211902

PATIENT
  Age: 67 Year
  Sex: Female
  Weight: 64.9 kg

DRUGS (11)
  1. AVASTIN [Suspect]
     Indication: COLORECTAL CANCER METASTATIC
     Dosage: 5 MG/KG Q2W, INTRAVENOUS
     Route: 042
     Dates: start: 20040607
  2. OXALIPLATIN (OXALIPLATIN) [Concomitant]
  3. FLUOROURACIL [Concomitant]
  4. LEUCOVORIN CALCIUM [Concomitant]
  5. VASOTEC [Concomitant]
  6. TOPROL (METOPROLOL SUCCINATE) [Concomitant]
  7. IMDUR [Concomitant]
  8. PHENERGAN [Concomitant]
  9. ATIVAN [Concomitant]
  10. ASPIRIN [Concomitant]
  11. IRINOTECAN (IRINOTECAN HYDROCHLORIDE) [Concomitant]

REACTIONS (3)
  - GASTRIC ULCER [None]
  - GASTROINTESTINAL NECROSIS [None]
  - NEUROPATHY PERIPHERAL [None]
